FAERS Safety Report 7506152-9 (Version None)
Quarter: 2011Q2

REPORT INFORMATION
  Report Type: 
  Country: None (occurrence: None)
  Receive Date: 20110526
  Receipt Date: 20110516
  Transmission Date: 20111010
  Serious: Yes (Disabling)
  Sender: FDA-Public Use
  Company Number: US-MYLANLABS-2011S1007082

PATIENT
  Age: 37 Year
  Sex: Female
  Weight: 69.85 kg

DRUGS (8)
  1. RISPERIDONE [Suspect]
     Indication: SCHIZOAFFECTIVE DISORDER
     Route: 048
  2. RISPERIDONE [Suspect]
     Indication: BIPOLAR DISORDER
     Route: 048
  3. PROZAC [Concomitant]
  4. LYRICA [Concomitant]
  5. ASPIRIN [Concomitant]
  6. TRILEPTAL [Concomitant]
  7. NUCYNTA [Concomitant]
  8. LIDOCAINE [Concomitant]

REACTIONS (2)
  - CYSTITIS INTERSTITIAL [None]
  - URINARY TRACT INFECTION [None]
